FAERS Safety Report 9032421 (Version 2)
Quarter: 2013Q1

REPORT INFORMATION
  Report Type: Spontaneous
  Country: US (occurrence: US)
  Receive Date: 20130125
  Receipt Date: 20130220
  Transmission Date: 20140127
  Serious: No
  Sender: FDA-Public Use
  Company Number: US-PFIZER INC-2013030969

PATIENT
  Age: 67 Year
  Sex: Male
  Weight: 58.96 kg

DRUGS (5)
  1. CHANTIX [Suspect]
     Indication: SMOKING CESSATION THERAPY
     Dosage: CUTTING 1MG TABLET INTO HALF, 1X/DAY
     Route: 048
     Dates: start: 2008
  2. CHANTIX [Suspect]
     Dosage: UNK
     Route: 048
     Dates: end: 2008
  3. HYDROCHLOROTHIAZIDE [Concomitant]
     Indication: HYPERTENSION
     Dosage: 25 MG, UNK
  4. METOPROLOL [Concomitant]
     Indication: HYPERTENSION
     Dosage: 50 MG, UNK
  5. ASPIRIN [Concomitant]
     Dosage: UNK, 1X/DAY

REACTIONS (3)
  - Headache [Recovered/Resolved]
  - Insomnia [Recovered/Resolved]
  - Abnormal dreams [Recovered/Resolved]
